FAERS Safety Report 20135072 (Version 1)
Quarter: 2021Q4

REPORT INFORMATION
  Report Type: Spontaneous
  Country: US (occurrence: None)
  Receive Date: 20211201
  Receipt Date: 20211201
  Transmission Date: 20220303
  Serious: Yes (Hospitalization)
  Sender: FDA-Public Use
  Company Number: None

PATIENT
  Age: 79 Year
  Sex: Female
  Weight: 72.6 kg

DRUGS (3)
  1. TAXOL [Suspect]
     Active Substance: PACLITAXEL
     Dates: end: 20211108
  2. PERTUZUMAB [Suspect]
     Active Substance: PERTUZUMAB
     Dates: end: 20211025
  3. HERCEPTIN [Suspect]
     Active Substance: TRASTUZUMAB
     Dates: end: 20211025

REACTIONS (6)
  - Syncope [None]
  - Lethargy [None]
  - Blood pressure systolic decreased [None]
  - Blood pressure diastolic decreased [None]
  - Computerised tomogram head abnormal [None]
  - Vasodilatation [None]

NARRATIVE: CASE EVENT DATE: 20211115
